FAERS Safety Report 22933223 (Version 4)
Quarter: 2023Q4

REPORT INFORMATION
  Report Type: Spontaneous
  Country: FR (occurrence: FR)
  Receive Date: 20230912
  Receipt Date: 20231026
  Transmission Date: 20240110
  Serious: Yes (Other)
  Sender: FDA-Public Use
  Company Number: FR-JNJFOC-20230906802

PATIENT
  Age: 68 Year
  Sex: Male

DRUGS (1)
  1. SIMPONI [Suspect]
     Active Substance: GOLIMUMAB
     Indication: Spondylitis
     Dosage: 100.00 MG/ML?SINCE 9 YEARS ON GOLIMUMAB?DOSAGE: 100 UNITS NOT SPECIFIED?100 MG FOR 5 OR 6 YEARS
     Route: 058

REACTIONS (6)
  - Spondylitis [Unknown]
  - Device mechanical issue [Unknown]
  - Needle issue [Unknown]
  - Incorrect dose administered [Unknown]
  - Intentional dose omission [Unknown]
  - Drug ineffective [Unknown]

NARRATIVE: CASE EVENT DATE: 20230806
